FAERS Safety Report 20435284 (Version 1)
Quarter: 2022Q1

REPORT INFORMATION
  Report Type: Spontaneous
  Country: US (occurrence: US)
  Receive Date: 20220206
  Receipt Date: 20220206
  Transmission Date: 20220423
  Serious: No
  Sender: FDA-Public Use
  Company Number: US-ELI_LILLY_AND_COMPANY-US202202001765

PATIENT

DRUGS (2)
  1. FORTEO [Suspect]
     Active Substance: TERIPARATIDE
     Indication: Post procedural hypoparathyroidism
     Dosage: UNK UNK, DAILY
     Route: 065
     Dates: start: 202101
  2. FORTEO [Suspect]
     Active Substance: TERIPARATIDE
     Dosage: UNK UNK, BID
     Route: 065
     Dates: start: 202107

REACTIONS (4)
  - Laboratory test abnormal [Unknown]
  - Inappropriate schedule of product administration [Unknown]
  - Off label use [Unknown]
  - Prescribed overdose [Unknown]
